FAERS Safety Report 6107167-8 (Version None)
Quarter: 2009Q1

REPORT INFORMATION
  Report Type: 
  Country: None (occurrence: None)
  Receive Date: 20090305
  Receipt Date: 20090305
  Transmission Date: 20090719
  Serious: No
  Sender: FDA-Public Use
  Company Number: None

PATIENT
  Age: 11 Year
  Sex: Male
  Weight: 36.2878 kg

DRUGS (1)
  1. RELENZA [Suspect]
     Dosage: 10 MG 2X DAILY INHALATION
     Route: 055
     Dates: start: 20090219, end: 20090220

REACTIONS (2)
  - CONVULSION [None]
  - HEADACHE [None]
